FAERS Safety Report 24079976 (Version 1)
Quarter: 2024Q3

REPORT INFORMATION
  Report Type: Spontaneous
  Country: US (occurrence: US)
  Receive Date: 20240711
  Receipt Date: 20240711
  Transmission Date: 20241017
  Serious: No
  Sender: SANOFI AVENTIS
  Company Number: US-SA-SAC20240705000792

PATIENT
  Age: 15 Year
  Sex: Female
  Weight: 84.8 kg

DRUGS (1)
  1. DUPIXENT [Suspect]
     Active Substance: DUPILUMAB
     Indication: Dermatitis atopic
     Dosage: 300 MG, QOW
     Route: 058
     Dates: start: 20230620

REACTIONS (4)
  - COVID-19 [Unknown]
  - Erythema of eyelid [Unknown]
  - Erythema [Unknown]
  - Conjunctivitis [Unknown]
